FAERS Safety Report 4336187-9 (Version None)
Quarter: 2004Q2

REPORT INFORMATION
  Report Type: 
  Country: None (occurrence: None)
  Receive Date: 20040407
  Receipt Date: 20040331
  Transmission Date: 20050107
  Serious: Yes (Hospitalization)
  Sender: FDA-Public Use
  Company Number: FRWYE530623JAN04

PATIENT
  Age: 62 Year
  Sex: Male

DRUGS (3)
  1. SIROLIMUS      (SIROLIMUS) [Suspect]
     Indication: PROPHYLAXIS AGAINST TRANSPLANT REJECTION
     Dosage: ORAL
     Route: 048
     Dates: start: 20030901, end: 20040127
  2. CELLCEPT [Suspect]
     Indication: PROPHYLAXIS AGAINST TRANSPLANT REJECTION
     Dosage: 1.5 G 1X PER 1 DAY ORAL
     Route: 048
     Dates: start: 20030901
  3. PREDNISONE TAB [Suspect]
     Indication: PROPHYLAXIS AGAINST TRANSPLANT REJECTION
     Dosage: ORAL
     Route: 048
     Dates: start: 20030901

REACTIONS (8)
  - ABDOMINAL PAIN [None]
  - DOUGLAS' ABSCESS [None]
  - ENTEROCOCCAL INFECTION [None]
  - IMPAIRED HEALING [None]
  - MALNUTRITION [None]
  - POST PROCEDURAL COMPLICATION [None]
  - PYREXIA [None]
  - WOUND EVISCERATION [None]
